FAERS Safety Report 12503802 (Version 1)
Quarter: 2016Q2

REPORT INFORMATION
  Report Type: Spontaneous
  Country: None (occurrence: None)
  Receive Date: 20160627
  Receipt Date: 20160627
  Transmission Date: 20160815
  Serious: No
  Sender: FDA-Public Use
  Company Number: None

PATIENT
  Age: 51 Year
  Sex: Male
  Weight: 98.43 kg

DRUGS (11)
  1. ATORVASTATIN [Concomitant]
     Active Substance: ATORVASTATIN
  2. ASA [Concomitant]
     Active Substance: ASPIRIN
  3. MVI [Concomitant]
     Active Substance: VITAMINS
  4. TRAZODONE [Concomitant]
     Active Substance: TRAZODONE HYDROCHLORIDE
  5. LISINOPRIL. [Concomitant]
     Active Substance: LISINOPRIL
  6. METOPROLOL. [Concomitant]
     Active Substance: METOPROLOL
  7. NIASPAN [Concomitant]
     Active Substance: NIACIN
  8. REPATHA [Suspect]
     Active Substance: EVOLOCUMAB
     Indication: CORONARY ARTERY DISEASE
     Route: 058
     Dates: start: 20160309, end: 20160608
  9. REPATHA [Suspect]
     Active Substance: EVOLOCUMAB
     Indication: HYPERLIPIDAEMIA
     Route: 058
     Dates: start: 20160309, end: 20160608
  10. ESOMEPRAZOLE [Concomitant]
     Active Substance: ESOMEPRAZOLE
  11. ZETIA [Concomitant]
     Active Substance: EZETIMIBE

REACTIONS (5)
  - Chills [None]
  - Nausea [None]
  - Dysgeusia [None]
  - Hyperhidrosis [None]
  - Abdominal pain upper [None]

NARRATIVE: CASE EVENT DATE: 20160620
